FAERS Safety Report 17290896 (Version 1)
Quarter: 2020Q1

REPORT INFORMATION
  Report Type: Report from Study
  Country: US (occurrence: US)
  Receive Date: 20200121
  Receipt Date: 20200121
  Transmission Date: 20200409
  Serious: Yes (Death, Other)
  Sender: FDA-Public Use
  Company Number: US-BAYER-2019-191226

PATIENT
  Age: 75 Year
  Sex: Male

DRUGS (1)
  1. NEXAVAR [Suspect]
     Active Substance: SORAFENIB
     Indication: HEPATOCELLULAR CARCINOMA
     Dosage: 400 MG (2-200 MG TABLETS), BID
     Route: 048
     Dates: start: 20191007, end: 20191020

REACTIONS (2)
  - Death [Fatal]
  - Acute myocardial infarction [None]

NARRATIVE: CASE EVENT DATE: 20191007
